FAERS Safety Report 19100370 (Version 1)
Quarter: 2021Q2

REPORT INFORMATION
  Report Type: Spontaneous
  Country: US (occurrence: US)
  Receive Date: 20210407
  Receipt Date: 20210407
  Transmission Date: 20210717
  Serious: No
  Sender: FDA-Public Use
  Company Number: US-JNJFOC-20210353026

PATIENT
  Age: 33 Year
  Sex: Female
  Weight: 54.48 kg

DRUGS (2)
  1. WOMENS ROGAINE UNSCENTED [Suspect]
     Active Substance: MINOXIDIL
     Route: 061
  2. WOMENS ROGAINE UNSCENTED [Suspect]
     Active Substance: MINOXIDIL
     Indication: ALOPECIA
     Dosage: PROBABLY LIKE A LITTLE BIGGER THAN JUST LIKE A QUARTER?SIZE KIND OF/MAYBE LIKE A SIZE OF TWO QUARTER
     Route: 061
     Dates: start: 20201125

REACTIONS (1)
  - Incorrect dose administered [Unknown]

NARRATIVE: CASE EVENT DATE: 20201125
